FAERS Safety Report 25944335 (Version 1)
Quarter: 2025Q4

REPORT INFORMATION
  Report Type: Spontaneous
  Country: US (occurrence: None)
  Receive Date: 20251020
  Receipt Date: 20251020
  Transmission Date: 20260118
  Serious: No
  Sender: FDA-CTU
  Company Number: None

PATIENT
  Age: 80 Year
  Sex: Male

DRUGS (1)
  1. OJJAARA [Suspect]
     Active Substance: MOMELOTINIB DIHYDROCHLORIDE MONOHYDRATE
     Indication: Myelofibrosis
     Dosage: 200 MG DAILY ORAL ?
     Route: 048
     Dates: start: 20250210

REACTIONS (3)
  - Influenza [None]
  - COVID-19 [None]
  - Intentional dose omission [None]

NARRATIVE: CASE EVENT DATE: 20251017
